FAERS Safety Report 7264038-1 (Version None)
Quarter: 2011Q1

REPORT INFORMATION
  Report Type: 
  Country: None (occurrence: None)
  Receive Date: 20110130
  Receipt Date: 20101230
  Transmission Date: 20110831
  Serious: No
  Sender: FDA-Public Use
  Company Number: US-ABBOTT-10P-163-0694518-00

PATIENT
  Sex: Female
  Weight: 63.56 kg

DRUGS (5)
  1. HUMIRA [Suspect]
     Indication: PSORIASIS
     Dates: start: 20100101, end: 20101001
  2. HUMIRA [Suspect]
     Dates: start: 20101001, end: 20101101
  3. UNKNOWN HORMONE REPLACEMENT [Concomitant]
     Indication: HORMONE REPLACEMENT THERAPY
  4. HUMIRA [Suspect]
     Dates: start: 20101101
  5. AMBIEN [Concomitant]
     Indication: SLEEP DISORDER THERAPY

REACTIONS (5)
  - INJECTION SITE PAIN [None]
  - UNDERDOSE [None]
  - PSORIASIS [None]
  - DRUG INEFFECTIVE [None]
  - DEVICE MALFUNCTION [None]
